FAERS Safety Report 14978036 (Version 6)
Quarter: 2018Q3

REPORT INFORMATION
  Report Type: Spontaneous
  Country: DE (occurrence: DE)
  Receive Date: 20180606
  Receipt Date: 20180829
  Transmission Date: 20181010
  Serious: Yes (Other)
  Sender: FDA-Public Use
  Company Number: DE-MERCK KGAA-2049062

PATIENT
  Sex: Male

DRUGS (7)
  1. NOVOTHYROX [Suspect]
     Active Substance: LEVOTHYROXINE SODIUM
     Dates: start: 201803, end: 201804
  2. NOVOTHYROX [Suspect]
     Active Substance: LEVOTHYROXINE SODIUM
     Dates: start: 201803, end: 201803
  3. NOVOTHYROX [Suspect]
     Active Substance: LEVOTHYROXINE SODIUM
     Indication: POST PROCEDURAL HYPOTHYROIDISM
     Dates: start: 201709, end: 20180123
  4. NOVOTHYROX [Suspect]
     Active Substance: LEVOTHYROXINE SODIUM
     Dates: start: 201804
  5. NOVOTHYROX [Suspect]
     Active Substance: LEVOTHYROXINE SODIUM
     Dates: start: 201806
  6. NOVOTHYRAL [Suspect]
     Active Substance: LEVOTHYROXINE SODIUM\LIOTHYRONINE SODIUM
     Dates: start: 20180612
  7. NOVOTHYRAL [Suspect]
     Active Substance: LEVOTHYROXINE SODIUM\LIOTHYRONINE SODIUM

REACTIONS (30)
  - Feeling abnormal [None]
  - Paraesthesia [None]
  - Dysphonia [None]
  - Chest pain [None]
  - Angina pectoris [None]
  - Malaise [None]
  - Hyperhidrosis [Not Recovered/Not Resolved]
  - Muscle spasms [None]
  - Decreased appetite [Not Recovered/Not Resolved]
  - Nausea [Not Recovered/Not Resolved]
  - Peripheral coldness [None]
  - Memory impairment [None]
  - Palpitations [Not Recovered/Not Resolved]
  - Nerve compression [None]
  - Tinnitus [Not Recovered/Not Resolved]
  - Somnolence [None]
  - Blood thyroid stimulating hormone decreased [None]
  - Head discomfort [Not Recovered/Not Resolved]
  - Feeling cold [None]
  - Insomnia [None]
  - Arrhythmia [None]
  - Fatigue [None]
  - Thyroxine free increased [None]
  - Increased appetite [None]
  - Hypotension [Recovered/Resolved]
  - Blood cholesterol increased [None]
  - Blood thyroid stimulating hormone increased [None]
  - Blood pressure increased [None]
  - Heart rate increased [None]
  - Cardiac discomfort [None]

NARRATIVE: CASE EVENT DATE: 201711
